FAERS Safety Report 6815774-X (Version None)
Quarter: 2010Q3

REPORT INFORMATION
  Report Type: 
  Country: None (occurrence: None)
  Receive Date: 20100705
  Receipt Date: 20100630
  Transmission Date: 20110219
  Serious: Yes (Disabling, Other)
  Sender: FDA-Public Use
  Company Number: US-MERCK-1003USA03102

PATIENT
  Age: 61 Year
  Sex: Female
  Weight: 109 kg

DRUGS (5)
  1. FOSAMAX [Suspect]
     Indication: OSTEOPOROSIS
     Route: 048
     Dates: start: 20040220, end: 20090101
  2. FOSAMAX [Suspect]
     Indication: BONE DENSITY DECREASED
     Route: 048
     Dates: start: 20040220, end: 20090101
  3. FOSAMAX PLUS D [Suspect]
     Indication: OSTEOPOROSIS
     Route: 048
     Dates: end: 20090101
  4. FOSAMAX PLUS D [Suspect]
     Indication: BONE DENSITY DECREASED
     Route: 048
     Dates: end: 20090101
  5. CORTICOSTEROIDS (UNSPECIFIED) [Concomitant]
     Indication: ADRENAL INSUFFICIENCY
     Route: 065
     Dates: start: 19951101

REACTIONS (35)
  - ANXIETY [None]
  - ARTHROPATHY [None]
  - BACK DISORDER [None]
  - BONE DENSITY DECREASED [None]
  - BONE DISORDER [None]
  - BONE FRAGMENTATION [None]
  - COMPUTERISED TOMOGRAM ABDOMEN ABNORMAL [None]
  - DENTAL CARIES [None]
  - DENTAL PLAQUE [None]
  - EXOSTOSIS [None]
  - GASTROINTESTINAL DISORDER [None]
  - GASTROINTESTINAL INFECTION [None]
  - GASTROINTESTINAL INFLAMMATION [None]
  - GINGIVAL BLEEDING [None]
  - GINGIVAL RECESSION [None]
  - HAEMORRHOIDS [None]
  - HERPES SIMPLEX [None]
  - HYPERCHOLESTEROLAEMIA [None]
  - IMPAIRED HEALING [None]
  - INTESTINAL ISCHAEMIA [None]
  - LOOSE TOOTH [None]
  - METASTASES TO LUNG [None]
  - MUSCULOSKELETAL PAIN [None]
  - MYOCARDIAL INFARCTION [None]
  - NECK PAIN [None]
  - OEDEMA MOUTH [None]
  - ORAL PAIN [None]
  - OSTEONECROSIS OF JAW [None]
  - SOFT TISSUE INFECTION [None]
  - SPINAL DISORDER [None]
  - SURGERY [None]
  - TOOTH DEPOSIT [None]
  - TOOTH DISORDER [None]
  - TOOTH IMPACTED [None]
  - VISUAL IMPAIRMENT [None]
